FAERS Safety Report 21453302 (Version 2)
Quarter: 2022Q4

REPORT INFORMATION
  Report Type: Spontaneous
  Country: RS (occurrence: RS)
  Receive Date: 20221013
  Receipt Date: 20221025
  Transmission Date: 20230113
  Serious: Yes (Other)
  Sender: FDA-Public Use
  Company Number: RS-SA-2022SA415240

PATIENT
  Age: 52 Year
  Sex: Female

DRUGS (5)
  1. LEFLUNOMIDE [Suspect]
     Active Substance: LEFLUNOMIDE
     Indication: Rheumatoid arthritis
     Dosage: 20 MG, QD
     Route: 048
     Dates: start: 2019, end: 202201
  2. LEFLUNOMIDE [Suspect]
     Active Substance: LEFLUNOMIDE
     Indication: Psoriatic arthropathy
  3. ADALIMUMAB [Suspect]
     Active Substance: ADALIMUMAB
     Indication: Rheumatoid arthritis
     Dosage: 40 MG EVERY OTHER WEEK
     Dates: start: 202110, end: 202201
  4. ADALIMUMAB [Suspect]
     Active Substance: ADALIMUMAB
     Indication: Psoriatic arthropathy
  5. PREDNISONE [Concomitant]
     Active Substance: PREDNISONE
     Indication: Arthritis
     Dosage: 1 MG/KG WITH PLANNED DOSE DECREASE

REACTIONS (3)
  - Thrombocytopenia [Recovered/Resolved]
  - Disease progression [Unknown]
  - COVID-19 [Unknown]

NARRATIVE: CASE EVENT DATE: 20211001
